FAERS Safety Report 9893790 (Version 1)
Quarter: 2014Q1

REPORT INFORMATION
  Report Type: Spontaneous
  Country: US (occurrence: US)
  Receive Date: 20140213
  Receipt Date: 20140213
  Transmission Date: 20141002
  Serious: No
  Sender: FDA-Public Use
  Company Number: US-TEVA-462192USA

PATIENT
  Age: 54 Year
  Sex: Female

DRUGS (3)
  1. QNASL [Suspect]
  2. XYZAL [Concomitant]
  3. ALLERGY SHOTS [Concomitant]

REACTIONS (5)
  - Nasal congestion [Not Recovered/Not Resolved]
  - Throat irritation [Not Recovered/Not Resolved]
  - Cough [Not Recovered/Not Resolved]
  - Hypersensitivity [Not Recovered/Not Resolved]
  - Drug ineffective [Unknown]
